FAERS Safety Report 9679055 (Version 3)
Quarter: 2014Q1

REPORT INFORMATION
  Report Type: Spontaneous
  Country: JP (occurrence: JP)
  Receive Date: 20131108
  Receipt Date: 20140217
  Transmission Date: 20141002
  Serious: Yes (Disabling, Other)
  Sender: FDA-Public Use
  Company Number: JP-UCBSA-102417

PATIENT
  Age: 70 Year
  Sex: Female

DRUGS (1)
  1. NEUPRO [Suspect]
     Indication: RESTLESS LEGS SYNDROME
     Dosage: DAILY DOSE: 1 MG
     Route: 062
     Dates: start: 20131007, end: 20131014

REACTIONS (3)
  - Contusion [Recovered/Resolved]
  - Dizziness [Recovered/Resolved]
  - Fall [Unknown]
